FAERS Safety Report 7091054-5 (Version None)
Quarter: 2010Q4

REPORT INFORMATION
  Report Type: 
  Country: None (occurrence: None)
  Receive Date: 20101109
  Receipt Date: 20101026
  Transmission Date: 20110411
  Serious: Yes (Hospitalization)
  Sender: FDA-Public Use
  Company Number: PHHY2010FR73119

PATIENT
  Age: 36 Year
  Sex: Male
  Weight: 75 kg

DRUGS (2)
  1. TEGRETOL [Suspect]
     Indication: CRANIAL NERVE DISORDER
     Dosage: 5 DF, QD
     Route: 048
     Dates: start: 20101016
  2. TEGRETOL [Suspect]
     Dosage: 1 DF
     Route: 048
     Dates: start: 20101017

REACTIONS (8)
  - ASTHENIA [None]
  - DIZZINESS [None]
  - DRUG INEFFECTIVE [None]
  - DRUG LEVEL INCREASED [None]
  - INCORRECT DOSE ADMINISTERED [None]
  - NAUSEA [None]
  - SOMNOLENCE [None]
  - VOMITING [None]
